FAERS Safety Report 24712832 (Version 1)
Quarter: 2024Q4

REPORT INFORMATION
  Report Type: Spontaneous
  Country: GB (occurrence: GB)
  Receive Date: 20241209
  Receipt Date: 20241209
  Transmission Date: 20250114
  Serious: Yes (Other)
  Sender: ALEXION PHARMACEUTICALS
  Company Number: None

PATIENT
  Age: 67 Year

DRUGS (5)
  1. OMEPRAZOLE [Interacting]
     Active Substance: OMEPRAZOLE
     Indication: Gastrooesophageal reflux disease
     Dosage: UNK
  2. FLUCLOXACILLIN SODIUM [Interacting]
     Active Substance: FLUCLOXACILLIN SODIUM
     Indication: Nail infection
     Dosage: 500 MILLIGRAM
  3. ATORVASTATIN [Concomitant]
     Active Substance: ATORVASTATIN
  4. BENDROFLUMETHIAZIDE [Concomitant]
     Active Substance: BENDROFLUMETHIAZIDE
  5. IRBESARTAN [Concomitant]
     Active Substance: IRBESARTAN

REACTIONS (4)
  - Dyspepsia [Unknown]
  - Drug interaction [Unknown]
  - Nausea [Unknown]
  - Gastritis [Unknown]
